FAERS Safety Report 14085089 (Version 1)
Quarter: 2017Q4

REPORT INFORMATION
  Report Type: Spontaneous
  Country: GB (occurrence: GB)
  Receive Date: 20171013
  Receipt Date: 20171013
  Transmission Date: 20180321
  Serious: Yes (Hospitalization, Other)
  Sender: FDA-Public Use
  Company Number: GB-TORRENT-00007034

PATIENT
  Age: 54 Year
  Sex: Female

DRUGS (2)
  1. CLOZAPINE. [Suspect]
     Active Substance: CLOZAPINE
  2. OLANZAPINE. [Suspect]
     Active Substance: OLANZAPINE

REACTIONS (2)
  - Mental disorder [Recovered/Resolved]
  - Drug ineffective [Unknown]

NARRATIVE: CASE EVENT DATE: 20160525
